FAERS Safety Report 24956202 (Version 7)
Quarter: 2025Q2

REPORT INFORMATION
  Report Type: Spontaneous
  Country: CO (occurrence: CO)
  Receive Date: 20250211
  Receipt Date: 20250618
  Transmission Date: 20250717
  Serious: No
  Sender: PFIZER
  Company Number: CO-PFIZER INC-202500029329

PATIENT
  Sex: Male

DRUGS (2)
  1. GENOTROPIN [Suspect]
     Active Substance: SOMATROPIN
     Dosage: 1.4 MG, DAILY
     Route: 058
  2. GENOTROPIN [Suspect]
     Active Substance: SOMATROPIN
     Dosage: 1.6 MG, DAILY

REACTIONS (2)
  - Needle issue [Unknown]
  - Incorrect dose administered by device [Unknown]
